FAERS Safety Report 8234113-3 (Version None)
Quarter: 2012Q1

REPORT INFORMATION
  Report Type: 
  Country: None (occurrence: None)
  Receive Date: 20120326
  Receipt Date: 20120326
  Transmission Date: 20120608
  Serious: Yes (Other)
  Sender: FDA-Public Use
  Company Number: None

PATIENT
  Age: 63 Year
  Sex: Female
  Weight: 68.492 kg

DRUGS (1)
  1. PAROXETINE HCL [Suspect]
     Indication: ANXIETY
     Dosage: 20.0 MG
     Route: 048
     Dates: start: 20000301, end: 20110929

REACTIONS (9)
  - ABNORMAL DREAMS [None]
  - DEPRESSION [None]
  - MUSCULOSKELETAL PAIN [None]
  - SUICIDAL IDEATION [None]
  - ANGER [None]
  - WITHDRAWAL SYNDROME [None]
  - GASTROINTESTINAL DISORDER [None]
  - ANXIETY [None]
  - FEELING COLD [None]
